FAERS Safety Report 18439506 (Version 1)
Quarter: 2020Q4

REPORT INFORMATION
  Report Type: Spontaneous
  Country: US (occurrence: US)
  Receive Date: 20201029
  Receipt Date: 20201029
  Transmission Date: 20210114
  Serious: No
  Sender: FDA-Public Use
  Company Number: US-TEVA-2020-US-1842740

PATIENT
  Age: 67 Year
  Sex: Female

DRUGS (21)
  1. FLUOXETINE [Concomitant]
     Active Substance: FLUOXETINE HYDROCHLORIDE
  2. SIMVASTATIN. [Concomitant]
     Active Substance: SIMVASTATIN
  3. NIFEDIPINE. [Concomitant]
     Active Substance: NIFEDIPINE
  4. MTV [Concomitant]
  5. ACYCLOVIR. [Concomitant]
     Active Substance: ACYCLOVIR
  6. TRETINOIN. [Concomitant]
     Active Substance: TRETINOIN
  7. ESTRADIOL. [Concomitant]
     Active Substance: ESTRADIOL
  8. LATISSE [Concomitant]
     Active Substance: BIMATOPROST
  9. TRANSDERM-SC [Concomitant]
  10. CALCIUM [Concomitant]
     Active Substance: CALCIUM
  11. AMBIEN [Concomitant]
     Active Substance: ZOLPIDEM TARTRATE
  12. HYDROCHLOROT [Concomitant]
     Active Substance: HYDROCHLOROTHIAZIDE
  13. POTASSIUM CHLORIDE. [Concomitant]
     Active Substance: POTASSIUM CHLORIDE
  14. CETIRIZINE [Concomitant]
     Active Substance: CETIRIZINE HYDROCHLORIDE
  15. COPAXONE [Suspect]
     Active Substance: GLATIRAMER ACETATE
     Indication: MULTIPLE SCLEROSIS
     Dosage: 20 MILLIGRAM DAILY;
     Route: 058
     Dates: start: 20140430
  16. MECLIZINE [Concomitant]
     Active Substance: MECLIZINE HYDROCHLORIDE
  17. METRONIDAZOL [Concomitant]
     Active Substance: METRONIDAZOLE
  18. ZOFRAN [Concomitant]
     Active Substance: ONDANSETRON HYDROCHLORIDE
  19. MONTELUKAST [Concomitant]
     Active Substance: MONTELUKAST SODIUM
  20. VITAMIN D [Concomitant]
     Active Substance: VITAMIN D NOS
  21. DIAZEPAM. [Concomitant]
     Active Substance: DIAZEPAM

REACTIONS (5)
  - Fatigue [Recovering/Resolving]
  - Peroneal nerve palsy [Not Recovered/Not Resolved]
  - Contusion [Not Recovered/Not Resolved]
  - Pain [Not Recovered/Not Resolved]
  - Fall [Not Recovered/Not Resolved]
